FAERS Safety Report 5036805-6 (Version None)
Quarter: 2006Q2

REPORT INFORMATION
  Report Type: 
  Country: None (occurrence: None)
  Receive Date: 20060622
  Receipt Date: 20060614
  Transmission Date: 20061013
  Serious: Yes (Disabling, Other)
  Sender: FDA-Public Use
  Company Number: USA-2006-0024431

PATIENT
  Sex: Male

DRUGS (3)
  1. OXYCONTIN [Suspect]
     Indication: PAIN
     Dosage: 20 MG, Q12H
  2. PERCOCET [Suspect]
     Indication: BREAKTHROUGH PAIN
  3. . [Concomitant]

REACTIONS (1)
  - VISUAL ACUITY REDUCED [None]
